FAERS Safety Report 9207065 (Version 1)
Quarter: 2013Q1

REPORT INFORMATION
  Report Type: Spontaneous
  Country: US (occurrence: None)
  Receive Date: 20120731
  Receipt Date: 20120731
  Transmission Date: 20140127
  Serious: No
  Sender: FDA-Public Use
  Company Number: 2012MZ000324

PATIENT
  Age: 35 Year
  Sex: Female
  Weight: 52.16 kg

DRUGS (3)
  1. XEOMIN [Suspect]
     Indication: SKIN WRINKLING
     Dates: start: 201203, end: 201203
  2. XEOMIN [Suspect]
     Indication: SKIN WRINKLING
     Dates: start: 201203, end: 201203
  3. XEOMIN [Suspect]
     Dates: start: 201203, end: 201203

REACTIONS (2)
  - Therapeutic response decreased [None]
  - Off label use [None]
